FAERS Safety Report 7919773-6 (Version None)
Quarter: 2011Q4

REPORT INFORMATION
  Report Type: 
  Country: None (occurrence: None)
  Receive Date: 20111115
  Receipt Date: 20111104
  Transmission Date: 20120403
  Serious: Yes (Life-Threatening, Hospitalization, Other)
  Sender: FDA-Public Use
  Company Number: 2011-2899

PATIENT
  Age: 60 Year
  Sex: Male

DRUGS (9)
  1. SOMATULINE DEPOT [Suspect]
     Indication: ACROMEGALY
     Dosage: 60 MG (60 MG, ONCE), SUBCUTANEOUS
     Route: 058
     Dates: start: 20110816, end: 20110816
  2. SIMVASTATIN [Concomitant]
  3. ADALAT [Concomitant]
  4. INSULINE GLARGINE (INSULIN GLARGINE) [Concomitant]
  5. BENDROFLUMETHIAZIDE (BENDROFLUMETHIAZIDE) [Concomitant]
  6. CABERGOLINE [Concomitant]
  7. ASPIRIN [Concomitant]
  8. NOVOLOG [Concomitant]
  9. IRBESARTAN [Concomitant]

REACTIONS (5)
  - PALPITATIONS [None]
  - TACHYCARDIA [None]
  - SINUS BRADYCARDIA [None]
  - DIARRHOEA [None]
  - HYPOGLYCAEMIA [None]
